FAERS Safety Report 9193523 (Version 1)
Quarter: 2013Q1

REPORT INFORMATION
  Report Type: Spontaneous
  Country: US (occurrence: US)
  Receive Date: 20130327
  Receipt Date: 20130327
  Transmission Date: 20140127
  Serious: Yes (Other)
  Sender: FDA-Public Use
  Company Number: US-TEVA-393552USA

PATIENT
  Sex: Female

DRUGS (2)
  1. PROAIR [Suspect]
  2. QVAR [Interacting]

REACTIONS (4)
  - Cushing^s syndrome [Unknown]
  - Weight increased [Unknown]
  - Abdominal discomfort [Unknown]
  - Drug interaction [Unknown]
